FAERS Safety Report 11310017 (Version 1)
Quarter: 2015Q3

REPORT INFORMATION
  Report Type: Spontaneous
  Country: DE (occurrence: DE)
  Receive Date: 20150724
  Receipt Date: 20150724
  Transmission Date: 20151125
  Serious: Yes (Hospitalization, Other)
  Sender: FDA-Public Use
  Company Number: DE-UCBSA-2014001144

PATIENT
  Age: 3 Year
  Sex: Female
  Weight: 15 kg

DRUGS (1)
  1. XUSAL [Suspect]
     Active Substance: LEVOCETIRIZINE DIHYDROCHLORIDE
     Dosage: 5 MG, 3X/DAY (TID)
     Route: 048
     Dates: start: 20140604, end: 20140604

REACTIONS (2)
  - Accidental exposure to product [Unknown]
  - Overdose [Unknown]

NARRATIVE: CASE EVENT DATE: 20140604
